FAERS Safety Report 17458634 (Version 1)
Quarter: 2020Q1

REPORT INFORMATION
  Report Type: Spontaneous
  Country: US (occurrence: US)
  Receive Date: 20190906
  Receipt Date: 20190906
  Transmission Date: 20200409
  Serious: Yes (Disabling)
  Sender: FDA-Public Use
  Company Number: None

PATIENT
  Age: 20 Year
  Sex: Male

DRUGS (1)
  1. MARIJUANA VAPE [Suspect]
     Active Substance: CANNABIS SATIVA SUBSP. INDICA TOP\DEVICE

REACTIONS (7)
  - Chest pain [None]
  - Oxygen saturation decreased [None]
  - Cough [None]
  - Lung disorder [None]
  - Dyspnoea [None]
  - Onychomadesis [None]
  - Haemoptysis [None]
